FAERS Safety Report 7836777-2 (Version None)
Quarter: 2011Q4

REPORT INFORMATION
  Report Type: 
  Country: None (occurrence: None)
  Receive Date: 20111024
  Receipt Date: 20111012
  Transmission Date: 20120403
  Serious: Yes (Death)
  Sender: FDA-Public Use
  Company Number: US-MYLANLABS-2009S1018506

PATIENT
  Age: 41 Year
  Sex: Female
  Weight: 79.83 kg

DRUGS (9)
  1. PREMARIN [Concomitant]
     Dosage: 0.9MG TABLETS
  2. FENTANYL-100 [Suspect]
     Dosage: CHANGE Q3D
     Route: 062
  3. CLONAZEPAM [Concomitant]
  4. GABAPENTIN [Concomitant]
  5. BENZONATATE [Concomitant]
     Route: 048
  6. HYDROMORPHONE HCL [Concomitant]
  7. FENTANYL-100 [Suspect]
     Indication: PAIN
     Dosage: CHANGE Q3D
     Route: 062
  8. AMITRIPTYLINE HCL [Concomitant]
     Indication: INSOMNIA
  9. TOPAMAX [Concomitant]

REACTIONS (1)
  - TOXICITY TO VARIOUS AGENTS [None]
